FAERS Safety Report 7104685-0 (Version None)
Quarter: 2010Q4

REPORT INFORMATION
  Report Type: 
  Country: None (occurrence: None)
  Receive Date: 20101116
  Receipt Date: 20101104
  Transmission Date: 20110411
  Serious: Yes (Other)
  Sender: FDA-Public Use
  Company Number: CN-JNJFOC-20101103590

PATIENT
  Sex: Male

DRUGS (2)
  1. SPORANOX [Suspect]
     Indication: ONYCHOMYCOSIS
     Route: 048
  2. SPORANOX [Suspect]
     Route: 048

REACTIONS (4)
  - CONSTIPATION [None]
  - DIZZINESS [None]
  - PYREXIA [None]
  - SWELLING [None]
